FAERS Safety Report 7174665-8 (Version None)
Quarter: 2010Q4

REPORT INFORMATION
  Report Type: 
  Country: None (occurrence: None)
  Receive Date: 20101219
  Receipt Date: 20100406
  Transmission Date: 20110411
  Serious: No
  Sender: FDA-Public Use
  Company Number: US-AMGEN-KDL404033

PATIENT

DRUGS (8)
  1. ENBREL [Suspect]
     Indication: PRODUCT USED FOR UNKNOWN INDICATION
     Dosage: 50 MG, QWK
  2. METHOTREXATE [Concomitant]
     Dosage: 2.5 MG, UNK
  3. AMLODIPINE BESYLATE [Concomitant]
     Dosage: 10 MG, UNK
  4. ADALIMUMAB [Concomitant]
  5. ISOSORBIDE DINITRATE [Concomitant]
     Dosage: 2.5 MG, UNK
  6. ERGOCALCIFEROL [Concomitant]
     Dosage: 50000 IU, UNK
  7. ESTRADIOL [Concomitant]
     Dosage: .5 MG, UNK
  8. ACETAMINOPHEN AND OXYCODONE HCL [Concomitant]
     Dosage: UNK UNK, UNK

REACTIONS (2)
  - HYPOAESTHESIA [None]
  - PARAESTHESIA [None]
